FAERS Safety Report 5549522-0 (Version None)
Quarter: 2007Q4

REPORT INFORMATION
  Report Type: 
  Country: None (occurrence: None)
  Receive Date: 20071212
  Receipt Date: 20071204
  Transmission Date: 20080405
  Serious: Yes (Hospitalization)
  Sender: FDA-Public Use
  Company Number: PHBS2007NO20727

PATIENT
  Age: 85 Year
  Sex: Female

DRUGS (9)
  1. ALBYL-E [Suspect]
     Indication: ATRIAL FLUTTER
     Dosage: 75 MG/DAY
     Route: 048
     Dates: start: 20071001, end: 20071101
  2. CALCIGRAN [Concomitant]
     Indication: OSTEOPOROSIS
     Dosage: 500 MG/DAY
     Route: 048
  3. FLAGYL [Concomitant]
     Dosage: 500 MG, TID
     Route: 048
     Dates: start: 20071110
  4. TARIVID [Concomitant]
     Dosage: 200 MG, BID
     Route: 048
     Dates: start: 20071110
  5. TRAMAGETIC [Concomitant]
     Indication: PAIN
     Dosage: 300 MG/DAY
  6. BETOLVEX [Concomitant]
  7. SELO-ZOK [Concomitant]
     Indication: ATRIAL FLUTTER
     Dosage: 50 MG/DAY
     Route: 048
  8. NYCOPLUS FOLSYRE [Concomitant]
     Dosage: 0.4 MG/DAY
     Route: 048
  9. VOLTAREN [Suspect]
     Indication: GOUT
     Dosage: 50 MG, TID
     Route: 048
     Dates: start: 20071109, end: 20071101

REACTIONS (4)
  - ABDOMINAL PAIN [None]
  - DRUG INTERACTION [None]
  - DUODENAL ULCER [None]
  - VOMITING [None]
